FAERS Safety Report 12219619 (Version 2)
Quarter: 2016Q2

REPORT INFORMATION
  Report Type: Report from Study
  Country: US (occurrence: US)
  Receive Date: 20160330
  Receipt Date: 20160414
  Transmission Date: 20160815
  Serious: No
  Sender: FDA-Public Use
  Company Number: US-AMGEN-USASL2016035582

PATIENT
  Age: 65 Year
  Sex: Female

DRUGS (1)
  1. ENBREL [Suspect]
     Active Substance: ETANERCEPT
     Indication: RHEUMATOID ARTHRITIS
     Dosage: 50 MG, WEEKLY
     Route: 065
     Dates: start: 20140915

REACTIONS (6)
  - Osteoarthritis [Unknown]
  - Dermatitis contact [Not Recovered/Not Resolved]
  - Arthritis [Unknown]
  - Fibromyalgia [Unknown]
  - Dyspnoea [Unknown]
  - Skin infection [Unknown]
